FAERS Safety Report 7637504 (Version 2)
Quarter: 2013Q1

REPORT INFORMATION
  Report Type: Spontaneous
  Country: US (occurrence: US)
  Receive Date: 20101022
  Receipt Date: 20130220
  Transmission Date: 20140127
  Serious: Yes (Hospitalization, Other)
  Sender: FDA-Public Use
  Company Number: US-ROCHE-683886

PATIENT
  Age: 29 None
  Sex: Male
  Weight: 81.6 kg

DRUGS (1)
  1. ACCUTANE [Suspect]
     Indication: ACNE CYSTIC
     Route: 065
     Dates: start: 199509, end: 199601

REACTIONS (4)
  - Crohn^s disease [Not Recovered/Not Resolved]
  - Small intestinal obstruction [Unknown]
  - Gastrointestinal injury [Unknown]
  - Depression [Unknown]
